FAERS Safety Report 8132922-2 (Version None)
Quarter: 2012Q1

REPORT INFORMATION
  Report Type: 
  Country: None (occurrence: None)
  Receive Date: 20120207
  Receipt Date: 20120123
  Transmission Date: 20120608
  Serious: Yes (Other)
  Sender: FDA-Public Use
  Company Number: TPA2012A00540

PATIENT
  Age: 70 Year
  Sex: Female

DRUGS (10)
  1. LERCANIDIPINE [Concomitant]
  2. TORSEMIDE [Concomitant]
  3. ADENURIC (FEBUXOSTAT) [Suspect]
     Indication: GOUT
     Dosage: 80 MG (80 MG,1 IN 1 D) ORAL
     Route: 048
     Dates: end: 20111228
  4. NEBIVOLOL HCL [Concomitant]
  5. MARCUMAR [Concomitant]
  6. RANITIDINE HCL [Concomitant]
  7. METFORMIN HYDROCHLORIDE [Concomitant]
  8. ASPIRIN [Concomitant]
  9. VICTOZA [Concomitant]
  10. RAMIPRIL [Concomitant]

REACTIONS (2)
  - CHOLESTASIS [None]
  - CHEST DISCOMFORT [None]
